FAERS Safety Report 24554962 (Version 7)
Quarter: 2025Q1

REPORT INFORMATION
  Report Type: Spontaneous
  Country: US (occurrence: US)
  Receive Date: 20241028
  Receipt Date: 20250326
  Transmission Date: 20250409
  Serious: No
  Sender: BIOGEN
  Company Number: US-BIOGEN-2024BI01288062

PATIENT
  Sex: Male

DRUGS (11)
  1. VUMERITY [Suspect]
     Active Substance: DIROXIMEL FUMARATE
     Indication: Multiple sclerosis
     Dosage: TAKE 2 CAPSULES (462MG) BY MOUTH TWICE DAILY
     Route: 050
  2. VITAMIN D3 [Concomitant]
     Active Substance: CHOLECALCIFEROL
     Route: 050
  3. TELMISARTAN [Concomitant]
     Active Substance: TELMISARTAN
     Route: 050
  4. ASPIRIN [Concomitant]
     Active Substance: ASPIRIN
     Route: 050
  5. LORATADINE [Concomitant]
     Active Substance: LORATADINE
     Route: 050
  6. OMEGA 3 [Concomitant]
     Active Substance: CAPSAICIN
     Route: 050
  7. WELLBUTRIN SR [Concomitant]
     Active Substance: BUPROPION HYDROCHLORIDE
     Route: 050
  8. CINNAMON [Concomitant]
     Active Substance: CINNAMON
     Route: 050
  9. TRAZODONE HCL [Concomitant]
     Active Substance: TRAZODONE HYDROCHLORIDE
     Route: 050
  10. TIZANIDINE HYDROCHLORIDE [Concomitant]
     Active Substance: TIZANIDINE HYDROCHLORIDE
     Route: 050
  11. VITAMINS [Concomitant]
     Active Substance: VITAMINS
     Route: 050

REACTIONS (4)
  - Product dose omission in error [Unknown]
  - Product dose omission issue [Unknown]
  - Mental disorder [Unknown]
  - Pruritus [Unknown]
